FAERS Safety Report 8842390 (Version 1)
Quarter: 2012Q4

REPORT INFORMATION
  Report Type: 
  Country: GB (occurrence: GB)
  Receive Date: 20121016
  Receipt Date: 20121016
  Transmission Date: 20130627
  Serious: Yes (Disabling, Other)
  Sender: FDA-Public Use
  Company Number: GB-B.I. PHARMACEUTICALS,INC./RIDGEFIELD-2012-UK-01394UK

PATIENT
  Age: 83 Year
  Sex: Female

DRUGS (6)
  1. DABIGATRAN [Suspect]
     Indication: ATRIAL FIBRILLATION
     Dosage: 220 mg
     Route: 048
  2. AMLODIPINE [Concomitant]
  3. BENDROFLUMETHIAZIDE [Concomitant]
  4. BISOPROLOL [Concomitant]
  5. LORATADINE [Concomitant]
  6. RAMIPRIL [Concomitant]

REACTIONS (2)
  - Cerebrovascular accident [Not Recovered/Not Resolved]
  - Infarction [Not Recovered/Not Resolved]
